FAERS Safety Report 9008530 (Version 1)
Quarter: 2013Q1

REPORT INFORMATION
  Report Type: Spontaneous
  Country: US (occurrence: US)
  Receive Date: 20130111
  Receipt Date: 20130111
  Transmission Date: 20140127
  Serious: Yes (Death)
  Sender: FDA-Public Use
  Company Number: PHEH2013US000891

PATIENT
  Age: 89 Year
  Sex: Female

DRUGS (1)
  1. GLEEVEC [Suspect]
     Indication: LEUKAEMOID REACTION
     Dosage: 400 MG, DAILY
     Route: 048
     Dates: start: 20121205

REACTIONS (1)
  - Death [Fatal]
